FAERS Safety Report 5167794-1 (Version None)
Quarter: 2006Q4

REPORT INFORMATION
  Report Type: 
  Country: None (occurrence: None)
  Receive Date: 20061208
  Receipt Date: 20061129
  Transmission Date: 20070319
  Serious: Yes (Other)
  Sender: FDA-Public Use
  Company Number: PHEH2006US14725

PATIENT
  Sex: Male

DRUGS (6)
  1. DIOVAN HCT [Suspect]
     Indication: HYPERTENSION
     Dosage: 320MG VAL/12.5MG HCT, QD
     Route: 048
     Dates: start: 20040101
  2. ALLOPURINOL SODIUM [Concomitant]
     Indication: GOUT
     Dosage: 320 MG, QD
  3. DOXAZOSIN MESYLATE [Concomitant]
     Indication: HYPERTENSION
     Dosage: 4 MG, QD
  4. CENTRUM SILVER [Concomitant]
     Dosage: UNK, UNK
  5. VITAMIN E [Concomitant]
     Dosage: UNK, UNK
  6. PRILOSEC [Concomitant]
     Dosage: UNK, UNK

REACTIONS (5)
  - CATHETERISATION CARDIAC [None]
  - DYSPNOEA [None]
  - FATIGUE [None]
  - MUSCLE SPASMS [None]
  - STENT PLACEMENT [None]
